FAERS Safety Report 20763414 (Version 2)
Quarter: 2022Q2

REPORT INFORMATION
  Report Type: Report from Study
  Country: US (occurrence: None)
  Receive Date: 20220428
  Receipt Date: 20220509
  Transmission Date: 20220721
  Serious: Yes (Hospitalization)
  Sender: FDA-Public Use
  Company Number: US-ROCHE-3071476

PATIENT
  Age: 57 Year
  Sex: Female
  Weight: 64.7 kg

DRUGS (2)
  1. RUNIMOTAMAB [Suspect]
     Active Substance: RUNIMOTAMAB
     Indication: Breast cancer metastatic
     Dosage: DOSE CONCENTRATION * 10 MG/ML?ON 05-APR-2022 10:30 AM TO 2:57 PM, THE PATIENT WAS RECEIVED MOST RECE
     Route: 042
     Dates: start: 20220405
  2. TRASTUZUMAB [Suspect]
     Active Substance: TRASTUZUMAB
     Indication: Breast cancer metastatic
     Dosage: START AND END DATE OF MOST RECENT DOSE(289MG) OF STUDY DRUG PRIOR TO AE:04/APR/2022?START AND END DA
     Route: 041
     Dates: start: 20220404

REACTIONS (1)
  - Cytokine release syndrome [Recovered/Resolved]

NARRATIVE: CASE EVENT DATE: 20220406
